FAERS Safety Report 8423990-9 (Version None)
Quarter: 2012Q2

REPORT INFORMATION
  Report Type: 
  Country: None (occurrence: None)
  Receive Date: 20120608
  Receipt Date: 20120531
  Transmission Date: 20120825
  Serious: Yes (Hospitalization, Other)
  Sender: FDA-Public Use
  Company Number: US-RB-041028-12

PATIENT
  Age: 34 Year
  Sex: Female

DRUGS (3)
  1. SUBOXONE [Suspect]
     Dosage: UNKNOWN DOSAGE DETAILS
     Route: 065
     Dates: start: 20120329, end: 20120401
  2. SUBOXONE [Suspect]
     Indication: PRODUCT USED FOR UNKNOWN INDICATION
     Dosage: UNKNOWN DOSAGE DETAILS
     Route: 065
     Dates: start: 20120404, end: 20120401
  3. SUBOXONE [Suspect]
     Dosage: UNKNOWN DOSAGE DETAILS
     Route: 065
     Dates: start: 20120415

REACTIONS (7)
  - INFECTION [None]
  - NAUSEA [None]
  - INCISION SITE OEDEMA [None]
  - FOOT FRACTURE [None]
  - PAIN IN EXTREMITY [None]
  - THROMBOSIS [None]
  - OEDEMA PERIPHERAL [None]
